FAERS Safety Report 6514562 (Version 14)
Quarter: 2013Q3

REPORT INFORMATION
  Report Type: Spontaneous
  Country: US (occurrence: US)
  Receive Date: 20071226
  Receipt Date: 20130819
  Transmission Date: 20140515
  Serious: Yes (Hospitalization, Disabling, Other)
  Sender: FDA-Public Use
  Company Number: US-009507513-0706USA03527

PATIENT
  Sex: Female
  Weight: 56.7 kg

DRUGS (8)
  1. FOSAMAX [Suspect]
     Indication: OSTEOPOROSIS
     Dosage: 70 MG, QW
     Route: 048
     Dates: start: 1995, end: 20050420
  2. FOSAMAX [Suspect]
     Indication: OSTEOPENIA
     Dosage: 10 MG, UNK
     Route: 048
     Dates: start: 19951001, end: 19951231
  3. FOSAMAX PLUS D [Suspect]
     Indication: OSTEOPOROSIS
     Dosage: 70 MG, UNK
     Route: 048
     Dates: start: 19960101, end: 200901
  4. FOSAMAX PLUS D [Suspect]
     Indication: OSTEOPENIA
  5. FOSAMAX [Suspect]
     Indication: OSTEOPOROSIS
     Dosage: 70 MG, UNK
     Route: 048
     Dates: start: 20050920, end: 20071210
  6. FOSAMAX [Suspect]
     Indication: OSTEOPENIA
  7. HORMONES (UNSPECIFIED) [Concomitant]
     Dates: start: 1995
  8. ANTINEOPLASTIC (UNSPECIFIED) [Concomitant]
     Dates: start: 200701, end: 200709

REACTIONS (84)
  - Femur fracture [Not Recovered/Not Resolved]
  - Femur fracture [Not Recovered/Not Resolved]
  - Brain neoplasm malignant [Not Recovered/Not Resolved]
  - Osteonecrosis [Unknown]
  - Pancytopenia [Unknown]
  - Stress fracture [Not Recovered/Not Resolved]
  - Central nervous system lymphoma [Not Recovered/Not Resolved]
  - Low turnover osteopathy [Not Recovered/Not Resolved]
  - Osteoporosis [Not Recovered/Not Resolved]
  - Biopsy brain [Unknown]
  - Transfusion [Unknown]
  - Oesophageal carcinoma [Unknown]
  - Hip arthroplasty [Unknown]
  - Osteonecrosis [Unknown]
  - Osteonecrosis [Unknown]
  - Osteonecrosis [Unknown]
  - Osteonecrosis of jaw [Unknown]
  - Anxiety [Unknown]
  - Upper respiratory tract infection [Recovering/Resolving]
  - Overdose [Unknown]
  - Blood cholesterol increased [Recovering/Resolving]
  - Nasopharyngitis [Unknown]
  - Sinusitis [Unknown]
  - Osteopenia [Unknown]
  - Lymphadenitis [Unknown]
  - Dental caries [Not Recovered/Not Resolved]
  - Tooth loss [Unknown]
  - Toothache [Unknown]
  - Oral infection [Unknown]
  - Abscess [Unknown]
  - Cough [Unknown]
  - Upper respiratory tract congestion [Unknown]
  - Onychomycosis [Unknown]
  - Cough [Unknown]
  - Bronchitis [Unknown]
  - Insomnia [Not Recovered/Not Resolved]
  - Acute sinusitis [Unknown]
  - Helicobacter infection [Unknown]
  - Hysterectomy [Unknown]
  - Gingival disorder [Unknown]
  - Cholelithiasis [Not Recovered/Not Resolved]
  - Regurgitation [Unknown]
  - Joint stiffness [Unknown]
  - Hypoaesthesia [Unknown]
  - Stress [Unknown]
  - Chest discomfort [Unknown]
  - Abnormal loss of weight [Unknown]
  - Adverse event [Unknown]
  - Thyroid mass [Recovered/Resolved]
  - Arthropathy [Unknown]
  - Adverse event [Unknown]
  - Merycism [Unknown]
  - Hilar lymphadenopathy [Unknown]
  - Diplopia [Unknown]
  - Muscular weakness [Unknown]
  - Balance disorder [Unknown]
  - Depression [Unknown]
  - Sinus disorder [Unknown]
  - Dyspnoea [Unknown]
  - Body height decreased [Unknown]
  - Impaired healing [Unknown]
  - Hyperthyroidism [Unknown]
  - Cervical conisation [Unknown]
  - Automatic bladder [Unknown]
  - Anaemia [Unknown]
  - Rotator cuff syndrome [Unknown]
  - Osteoarthritis [Unknown]
  - Periarthritis [Unknown]
  - Necrosis [Unknown]
  - Loose tooth [Unknown]
  - Osteoarthritis [Unknown]
  - Urticaria contact [Unknown]
  - Dermatitis contact [Unknown]
  - Pyrexia [Unknown]
  - Dysphagia [Not Recovered/Not Resolved]
  - Joint swelling [Unknown]
  - Dyspepsia [Unknown]
  - Pain in jaw [Unknown]
  - Abdominal pain lower [Unknown]
  - Rash [Unknown]
  - Gastric ulcer [Not Recovered/Not Resolved]
  - Gastrooesophageal reflux disease [Unknown]
  - Oesophageal discomfort [Unknown]
  - Constipation [Unknown]
